FAERS Safety Report 5350780-6 (Version None)
Quarter: 2007Q2

REPORT INFORMATION
  Report Type: 
  Country: None (occurrence: None)
  Receive Date: 20070608
  Receipt Date: 20070529
  Transmission Date: 20071010
  Serious: Yes (Other)
  Sender: FDA-Public Use
  Company Number: JP-ROCHE-490493

PATIENT
  Age: 7 Year
  Sex: Male
  Weight: 30 kg

DRUGS (6)
  1. TAMIFLU [Suspect]
     Dosage: FORM REPORTED AS DRY SYRUP.
     Route: 048
     Dates: start: 20070312, end: 20070312
  2. GASMOTIN [Concomitant]
     Route: 048
     Dates: start: 20070312, end: 20070317
  3. ASVERIN [Concomitant]
     Route: 048
     Dates: start: 20070312, end: 20070317
  4. MUCOSOLVAN [Concomitant]
     Route: 048
     Dates: start: 20070312, end: 20070317
  5. COCARL [Concomitant]
     Route: 048
     Dates: start: 20070312, end: 20070312
  6. PERIACTIN [Concomitant]
     Route: 048
     Dates: start: 20070312, end: 20070317

REACTIONS (1)
  - ABNORMAL BEHAVIOUR [None]
